FAERS Safety Report 8877395 (Version 1)
Quarter: 2012Q4

REPORT INFORMATION
  Report Type: 
  Country: US (occurrence: US)
  Receive Date: 20121024
  Receipt Date: 20121024
  Transmission Date: 20130627
  Serious: No
  Sender: FDA-Public Use
  Company Number: US-PFIZER INC-2012258887

PATIENT
  Age: 58 Year
  Sex: Female
  Weight: 72.56 kg

DRUGS (4)
  1. GABAPENTIN [Suspect]
     Indication: ANXIETY
     Dosage: 1800 mg daily
  2. GABAPENTIN [Suspect]
     Dosage: 600 mg daily
  3. KLONOPIN [Concomitant]
     Indication: ANXIETY
     Dosage: 4 mg, Daily
  4. KLONOPIN [Concomitant]
     Dosage: 6 mg daily

REACTIONS (15)
  - Withdrawal syndrome [Unknown]
  - Pain [Unknown]
  - Head discomfort [Unknown]
  - Crying [Unknown]
  - Pain in extremity [Unknown]
  - Off label use [Unknown]
  - Myalgia [Unknown]
  - Migraine [Unknown]
  - Malaise [Unknown]
  - Feeling abnormal [Unknown]
  - Insomnia [Unknown]
  - Dizziness [Unknown]
  - Chest pain [Unknown]
  - Abdominal pain upper [Unknown]
  - Vomiting [Unknown]
